FAERS Safety Report 5263227-5 (Version None)
Quarter: 2007Q1

REPORT INFORMATION
  Report Type: 
  Country: None (occurrence: None)
  Receive Date: 20061219
  Receipt Date: 20061009
  Transmission Date: 20070707
  Serious: No
  Sender: FDA-Public Use
  Company Number: 2006US002335

PATIENT
  Age: 62 Year
  Sex: Female

DRUGS (7)
  1. VESICARE [Suspect]
     Indication: HYPERTONIC BLADDER
     Dosage: 5 MG, ORAL
     Route: 048
  2. LIPITOR [Concomitant]
  3. SYNTHROID [Concomitant]
  4. ZETIA [Concomitant]
  5. WELLBUTRIN [Concomitant]
  6. FOSAMAX [Concomitant]
  7. ANTIHYERTENSIVES [Concomitant]

REACTIONS (1)
  - BLADDER SPASM [None]
